FAERS Safety Report 17292265 (Version 2)
Quarter: 2020Q3

REPORT INFORMATION
  Report Type: Report from Study
  Country: FR (occurrence: FR)
  Receive Date: 20200121
  Receipt Date: 20200708
  Transmission Date: 20201102
  Serious: Yes (Death, Life-Threatening, Hospitalization)
  Sender: FDA-Public Use
  Company Number: FR-BAYER-2019-232399

PATIENT
  Age: 50 Year
  Sex: Male
  Weight: 56 kg

DRUGS (12)
  1. IRINOTECAN [Suspect]
     Active Substance: IRINOTECAN
     Indication: GASTROOESOPHAGEAL CANCER
     Dosage: 313 MG
     Dates: start: 20190724, end: 20190724
  2. IRINOTECAN [Suspect]
     Active Substance: IRINOTECAN
     Indication: METASTASIS
  3. RAMIPRIL. [Concomitant]
     Active Substance: RAMIPRIL
  4. REGORAFENIB. [Suspect]
     Active Substance: REGORAFENIB
     Indication: GASTROOESOPHAGEAL CANCER
     Dosage: 160 MG
     Route: 048
     Dates: start: 20190725
  5. ACTISKENAN [Concomitant]
     Active Substance: MORPHINE SULFATE
  6. MACROGOL;POTASSIUM CHLORIDE;SODIUM BICARBONATE;SODIUM CHLORIDE [Concomitant]
     Active Substance: POLYETHYLENE GLYCOL\POTASSIUM CHLORIDE\SODIUM BICARBONATE\SODIUM CHLORIDE
  7. VOGALENE [Concomitant]
     Active Substance: METOPIMAZINE
  8. PANTOPRAZOLE [Concomitant]
     Active Substance: PANTOPRAZOLE
  9. MORPHINE [Concomitant]
     Active Substance: MORPHINE
  10. SODIUM BICARBONATE. [Concomitant]
     Active Substance: SODIUM BICARBONATE
  11. SPASFON LYOC [Concomitant]
     Active Substance: PHLOROGLUCINOL
  12. REGORAFENIB. [Suspect]
     Active Substance: REGORAFENIB
     Indication: METASTASIS

REACTIONS (2)
  - Tumour ulceration [Fatal]
  - Gastric perforation [Fatal]

NARRATIVE: CASE EVENT DATE: 20190803
